FAERS Safety Report 24744272 (Version 1)
Quarter: 2024Q4

REPORT INFORMATION
  Report Type: Spontaneous
  Country: US (occurrence: None)
  Receive Date: 20241216
  Receipt Date: 20241216
  Transmission Date: 20250114
  Serious: Yes (unspecified)
  Sender: Public
  Company Number: None

PATIENT
  Age: 71 Year
  Sex: Male
  Weight: 74.4 kg

DRUGS (2)
  1. BENZOCAINE (BENZOCAINE) [Suspect]
     Active Substance: BENZOCAINE
     Indication: Laryngoscopy
     Dosage: OTHER FREQUENCY : ONCE;?
     Route: 049
     Dates: start: 20241115, end: 20241115
  2. LISINOPRIL [Suspect]
     Active Substance: LISINOPRIL
     Dates: start: 20241114

REACTIONS (2)
  - Oxygen saturation decreased [None]
  - Throat irritation [None]

NARRATIVE: CASE EVENT DATE: 20241115
